FAERS Safety Report 8428638-5 (Version None)
Quarter: 2012Q2

REPORT INFORMATION
  Report Type: 
  Country: None (occurrence: None)
  Receive Date: 20120606
  Receipt Date: 20120606
  Transmission Date: 20120825
  Serious: No
  Sender: FDA-Public Use
  Company Number: None

PATIENT
  Age: 58 Year
  Sex: Female

DRUGS (5)
  1. AMPYRA [Suspect]
     Indication: MULTIPLE SCLEROSIS
     Dosage: 10 MG Q 12 HOURS BY MOUTH
     Route: 048
     Dates: start: 20100712
  2. PAROXETINE [Concomitant]
  3. OXYBUTYNIN [Concomitant]
  4. MESALAMINE [Concomitant]
  5. ALENDRONATE SODIUM [Concomitant]

REACTIONS (4)
  - URGE INCONTINENCE [None]
  - HYPERTONIC BLADDER [None]
  - URINARY RETENTION [None]
  - URINARY TRACT INFECTION [None]
